FAERS Safety Report 5835315-3 (Version None)
Quarter: 2008Q3

REPORT INFORMATION
  Report Type: 
  Country: None (occurrence: None)
  Receive Date: 20080804
  Receipt Date: 20080722
  Transmission Date: 20090109
  Serious: Yes (Hospitalization)
  Sender: FDA-Public Use
  Company Number: 20085314

PATIENT
  Sex: Male

DRUGS (1)
  1. LIORESAL [Suspect]
     Indication: MUSCLE SPASTICITY
     Dosage: 670 MCG, DAILY, INTRATHECAL
     Route: 037

REACTIONS (9)
  - BRADYCARDIA [None]
  - CARDIOVASCULAR DISORDER [None]
  - DRUG EFFECT DECREASED [None]
  - HYPERTONIA [None]
  - INJURY [None]
  - MUSCLE SPASTICITY [None]
  - PAIN [None]
  - URINARY TRACT INFECTION [None]
  - VISUAL IMPAIRMENT [None]
